FAERS Safety Report 13917401 (Version 1)
Quarter: 2017Q3

REPORT INFORMATION
  Report Type: Spontaneous
  Country: FR (occurrence: FR)
  Receive Date: 20170829
  Receipt Date: 20170829
  Transmission Date: 20171127
  Serious: Yes (Other)
  Sender: FDA-Public Use
  Company Number: FR-GLAXOSMITHKLINE-FR2017GSK132447

PATIENT
  Sex: Male

DRUGS (2)
  1. LAMICTAL [Suspect]
     Active Substance: LAMOTRIGINE
     Indication: EPILEPSY
     Dosage: 200 MG, UNK
     Route: 064
  2. DEPAKINE CHRONO [Suspect]
     Active Substance: VALPROATE SODIUM
     Indication: EPILEPSY
     Dosage: 500 MG, UNK
     Route: 064

REACTIONS (6)
  - Genotoxicity [Unknown]
  - Disturbance in social behaviour [Not Recovered/Not Resolved]
  - Learning disorder [Not Recovered/Not Resolved]
  - Fine motor delay [Not Recovered/Not Resolved]
  - Paternal exposure timing unspecified [Unknown]
  - Foetal exposure during pregnancy [Unknown]
